FAERS Safety Report 24667710 (Version 3)
Quarter: 2025Q1

REPORT INFORMATION
  Report Type: Report from Study
  Country: US (occurrence: US)
  Receive Date: 20241126
  Receipt Date: 20250103
  Transmission Date: 20250409
  Serious: Yes (Hospitalization, Other)
  Sender: ACADIA PHARMACEUTICALS
  Company Number: US-ACADIA PHARMACEUTICALS INC.-ACA-2024-PIM-007303

PATIENT
  Age: 96 Year
  Sex: Female

DRUGS (15)
  1. NUPLAZID [Suspect]
     Active Substance: PIMAVANSERIN TARTRATE
     Indication: Parkinson^s disease
     Dosage: 34 MILLIGRAM, QD
     Route: 048
     Dates: start: 20231228
  2. NUPLAZID [Suspect]
     Active Substance: PIMAVANSERIN TARTRATE
     Indication: Hallucination
     Dosage: 34 MILLIGRAM, QD
     Route: 048
     Dates: start: 20241129
  3. FEBUXOSTAT [Concomitant]
     Active Substance: FEBUXOSTAT
  4. COLCHICINE [Concomitant]
     Active Substance: COLCHICINE
  5. FUROSEMIDE [Concomitant]
     Active Substance: FUROSEMIDE
  6. DONEPEZIL [Concomitant]
     Active Substance: DONEPEZIL
  7. LISINOPRIL [Concomitant]
     Active Substance: LISINOPRIL
  8. ASPIRIN [Concomitant]
     Active Substance: ASPIRIN
  9. MINERALS\VITAMINS [Concomitant]
     Active Substance: MINERALS\VITAMINS
  10. QUERCETIN [Concomitant]
     Active Substance: QUERCETIN
  11. SEROQUEL [Concomitant]
     Active Substance: QUETIAPINE FUMARATE
  12. HYDRALAZINE [Concomitant]
     Active Substance: HYDRALAZINE HYDROCHLORIDE
  13. VITAMIN D3 [Concomitant]
     Active Substance: CHOLECALCIFEROL
  14. ZINC [Concomitant]
     Active Substance: ZINC
  15. TERBINAFINE [Concomitant]
     Active Substance: TERBINAFINE

REACTIONS (4)
  - Peripheral artery occlusion [Recovered/Resolved]
  - Stent placement [Recovered/Resolved]
  - Gangrene [Recovered/Resolved]
  - Urinary tract infection [Recovered/Resolved]

NARRATIVE: CASE EVENT DATE: 20241021
